FAERS Safety Report 13554379 (Version 4)
Quarter: 2017Q4

REPORT INFORMATION
  Report Type: Spontaneous
  Country: JP (occurrence: JP)
  Receive Date: 20170517
  Receipt Date: 20171228
  Transmission Date: 20180320
  Serious: Yes (Death, Other)
  Sender: FDA-Public Use
  Company Number: JP-009507513-1705JPN001206J

PATIENT
  Age: 84 Year
  Sex: Female
  Weight: 38 kg

DRUGS (7)
  1. KEYTRUDA [Suspect]
     Active Substance: PEMBROLIZUMAB
     Indication: LUNG ADENOCARCINOMA
     Dosage: 200 MG, Q3W
     Route: 041
     Dates: start: 20170412, end: 201704
  2. CERCINE [Concomitant]
     Active Substance: DIAZEPAM
     Dosage: 2 MG, TID
     Route: 048
     Dates: end: 20170424
  3. CELECOX [Concomitant]
     Active Substance: CELECOXIB
     Dosage: 100 MG, BID
     Route: 048
     Dates: end: 20170424
  4. FERROMIA [Concomitant]
     Active Substance: SODIUM FERROUS CITRATE
     Dosage: 50 MG, BID
     Route: 048
     Dates: end: 20170424
  5. LYRICA [Concomitant]
     Active Substance: PREGABALIN
     Dosage: 50 MG, BID
     Route: 048
     Dates: end: 20170424
  6. LAC-B [Concomitant]
     Active Substance: BIFIDOBACTERIUM SPP.
     Dosage: 1 G, TID
     Route: 048
     Dates: end: 20170424
  7. BEZATOL SR [Concomitant]
     Active Substance: BEZAFIBRATE
     Dosage: 200 MG, BID
     Route: 048
     Dates: end: 20170424

REACTIONS (1)
  - Malignant neoplasm progression [Fatal]

NARRATIVE: CASE EVENT DATE: 20170427
